FAERS Safety Report 25865900 (Version 3)
Quarter: 2025Q4

REPORT INFORMATION
  Report Type: Spontaneous
  Country: BR (occurrence: BR)
  Receive Date: 20250930
  Receipt Date: 20251106
  Transmission Date: 20260118
  Serious: Yes (Other)
  Sender: BIOMARIN
  Company Number: BR-SANOFI-02663248

PATIENT
  Age: 10 Year
  Sex: Female
  Weight: 26.3 kg

DRUGS (4)
  1. LARONIDASE [Suspect]
     Active Substance: LARONIDASE
     Indication: Mucopolysaccharidosis I
     Dosage: UNK UNK, Q15D
     Dates: start: 201611, end: 20250904
  2. LARONIDASE [Suspect]
     Active Substance: LARONIDASE
     Dosage: UNK, QW
  3. CAPTOPRIL [Concomitant]
     Active Substance: CAPTOPRIL
     Indication: Product used for unknown indication
     Dosage: UNK
  4. PROPANTHELINE [Concomitant]
     Active Substance: PROPANTHELINE
     Indication: Product used for unknown indication
     Dosage: UNK

REACTIONS (7)
  - Brain oedema [Unknown]
  - Respiratory distress [Unknown]
  - Quadriparesis [Unknown]
  - Arnold-Chiari malformation [Unknown]
  - Hydrocephalus [Unknown]
  - Hypersensitivity [Unknown]
  - Inappropriate schedule of product administration [Unknown]

NARRATIVE: CASE EVENT DATE: 20161101
